APPROVED DRUG PRODUCT: PURIFIED CORTROPHIN GEL
Active Ingredient: CORTICOTROPIN
Strength: 80 UNITS/ML
Dosage Form/Route: INJECTABLE;INJECTION
Application: N008975 | Product #002
Applicant: ANI PHARMACEUTICALS INC
Approved: Approved Prior to Jan 1, 1982 | RLD: Yes | RS: Yes | Type: RX

PATENTS:
Patent 12440542 | Expires: Oct 27, 2043
Patent 12440542 | Expires: Oct 27, 2043
Patent 12440542 | Expires: Oct 27, 2043
Patent 12440542 | Expires: Oct 27, 2043
Patent 12440542 | Expires: Oct 27, 2043
Patent 12440542 | Expires: Oct 27, 2043
Patent 12440542 | Expires: Oct 27, 2043
Patent 12440542 | Expires: Oct 27, 2043
Patent 12440542 | Expires: Oct 27, 2043
Patent 12440542 | Expires: Oct 27, 2043
Patent 12440542 | Expires: Oct 27, 2043
Patent 12440542 | Expires: Oct 27, 2043
Patent 12440542 | Expires: Oct 27, 2043
Patent 12102662 | Expires: Oct 27, 2043
Patent 12102662 | Expires: Oct 27, 2043
Patent 12102662 | Expires: Oct 27, 2043
Patent 12102662 | Expires: Oct 27, 2043
Patent 12102662 | Expires: Oct 27, 2043
Patent 12102662 | Expires: Oct 27, 2043
Patent 12102662 | Expires: Oct 27, 2043
Patent 12102662 | Expires: Oct 27, 2043
Patent 12102662 | Expires: Oct 27, 2043
Patent 12102662 | Expires: Oct 27, 2043
Patent 12102662 | Expires: Oct 27, 2043
Patent 12102662 | Expires: Oct 27, 2043
Patent 12102662 | Expires: Oct 27, 2043
Patent 12102662 | Expires: Oct 27, 2043
Patent 12102662 | Expires: Oct 27, 2043
Patent 12102662 | Expires: Oct 27, 2043
Patent 12102662 | Expires: Oct 27, 2043
Patent 12102662 | Expires: Oct 27, 2043
Patent 12102662 | Expires: Oct 27, 2043
Patent 12102662 | Expires: Oct 27, 2043
Patent 12102662 | Expires: Oct 27, 2043
Patent 12102662 | Expires: Oct 27, 2043
Patent 12102662 | Expires: Oct 27, 2043
Patent 12440542 | Expires: Oct 27, 2043
Patent 12440542 | Expires: Oct 27, 2043
Patent 12440542 | Expires: Oct 27, 2043
Patent 12440542 | Expires: Oct 27, 2043
Patent 12440542 | Expires: Oct 27, 2043
Patent 12440542 | Expires: Oct 27, 2043
Patent 12440542 | Expires: Oct 27, 2043
Patent 12440542 | Expires: Oct 27, 2043
Patent 12440542 | Expires: Oct 27, 2043
Patent 12440542 | Expires: Oct 27, 2043
Patent 12233105 | Expires: Oct 27, 2043
Patent 12233105 | Expires: Oct 27, 2043
Patent 12233105 | Expires: Oct 27, 2043
Patent 12233105 | Expires: Oct 27, 2043
Patent 12233105 | Expires: Oct 27, 2043
Patent 12233105 | Expires: Oct 27, 2043
Patent 12233105 | Expires: Oct 27, 2043
Patent 12233105 | Expires: Oct 27, 2043
Patent 12233105 | Expires: Oct 27, 2043
Patent 12233105 | Expires: Oct 27, 2043
Patent 12233105 | Expires: Oct 27, 2043
Patent 12233105 | Expires: Oct 27, 2043
Patent 12233105 | Expires: Oct 27, 2043
Patent 12233105 | Expires: Oct 27, 2043
Patent 12233105 | Expires: Oct 27, 2043
Patent 12233105 | Expires: Oct 27, 2043
Patent 12233105 | Expires: Oct 27, 2043
Patent 12233105 | Expires: Oct 27, 2043
Patent 12233105 | Expires: Oct 27, 2043
Patent 12233105 | Expires: Oct 27, 2043
Patent 12233105 | Expires: Oct 27, 2043
Patent 12233105 | Expires: Oct 27, 2043
Patent 12233105 | Expires: Oct 27, 2043
Patent 11975047 | Expires: Oct 27, 2043
Patent 11975047 | Expires: Oct 27, 2043
Patent 11975047 | Expires: Oct 27, 2043
Patent 11975047 | Expires: Oct 27, 2043
Patent 11975047 | Expires: Oct 27, 2043
Patent 11975047 | Expires: Oct 27, 2043
Patent 11975047 | Expires: Oct 27, 2043
Patent 11975047 | Expires: Oct 27, 2043
Patent 11975047 | Expires: Oct 27, 2043
Patent 11975047 | Expires: Oct 27, 2043
Patent 11975047 | Expires: Oct 27, 2043
Patent 11975047 | Expires: Oct 27, 2043
Patent 11975047 | Expires: Oct 27, 2043
Patent 11975047 | Expires: Oct 27, 2043
Patent 11975047 | Expires: Oct 27, 2043
Patent 11975047 | Expires: Oct 27, 2043
Patent 11975047 | Expires: Oct 27, 2043
Patent 11975047 | Expires: Oct 27, 2043
Patent 11975047 | Expires: Oct 27, 2043
Patent 11975047 | Expires: Oct 27, 2043
Patent 11975047 | Expires: Oct 27, 2043
Patent 11975047 | Expires: Oct 27, 2043
Patent 11975047 | Expires: Oct 27, 2043
Patent 12324787 | Expires: Oct 27, 2043